FAERS Safety Report 13017737 (Version 1)
Quarter: 2016Q4

REPORT INFORMATION
  Report Type: Spontaneous
  Country: US (occurrence: US)
  Receive Date: 20161212
  Receipt Date: 20161212
  Transmission Date: 20170207
  Serious: No
  Sender: FDA-Public Use
  Company Number: US-PFIZER INC-2016565926

PATIENT
  Age: 46 Year
  Sex: Female

DRUGS (2)
  1. NEURONTIN [Suspect]
     Active Substance: GABAPENTIN
     Dosage: UNK
  2. OSPHENA [Suspect]
     Active Substance: OSPEMIFENE
     Dosage: UNK

REACTIONS (1)
  - Blister [Recovered/Resolved]
